FAERS Safety Report 9484556 (Version 1)
Quarter: 2013Q3

REPORT INFORMATION
  Report Type: Spontaneous
  Country: DK (occurrence: DK)
  Receive Date: 20130828
  Receipt Date: 20130828
  Transmission Date: 20140515
  Serious: Yes (Other)
  Sender: FDA-Public Use
  Company Number: DK-BAYER-2013-099558

PATIENT
  Age: 2 Year
  Sex: Female

DRUGS (4)
  1. CIPROFLOXACIN [Suspect]
  2. CHLORAMPHENICOL [Suspect]
     Indication: CORNEAL OPACITY
  3. ATROPINE SULFATE [Suspect]
  4. OXYTETRACYCLINE/POLYMYXIN B [Suspect]

REACTIONS (8)
  - Corneal oedema [Not Recovered/Not Resolved]
  - Corneal perforation [Not Recovered/Not Resolved]
  - Eye infection [Not Recovered/Not Resolved]
  - Hypopyon [Not Recovered/Not Resolved]
  - Iris adhesions [Not Recovered/Not Resolved]
  - Iritis [Not Recovered/Not Resolved]
  - Ulcerative keratitis [Not Recovered/Not Resolved]
  - Drug ineffective [None]
